FAERS Safety Report 6187764-4 (Version None)
Quarter: 2009Q2

REPORT INFORMATION
  Report Type: 
  Country: None (occurrence: None)
  Receive Date: 20090511
  Receipt Date: 20090511
  Transmission Date: 20091009
  Serious: Yes (Other)
  Sender: FDA-Public Use
  Company Number: None

PATIENT
  Sex: Female
  Weight: 46.7205 kg

DRUGS (1)
  1. BONIVA [Suspect]
     Indication: OSTEOPOROSIS
     Dosage: 150 MG 1 A MONTH OCT, NOV, DEC. J,F,M, APRIL

REACTIONS (5)
  - FEELING HOT [None]
  - PRURITUS [None]
  - SCAB [None]
  - SKIN DISORDER [None]
  - URTICARIA [None]
